FAERS Safety Report 21540718 (Version 2)
Quarter: 2022Q4

REPORT INFORMATION
  Report Type: Spontaneous
  Country: GB (occurrence: GB)
  Receive Date: 20221102
  Receipt Date: 20221115
  Transmission Date: 20230113
  Serious: Yes (Hospitalization)
  Sender: FDA-Public Use
  Company Number: GB-MYLANLABS-2022M1119661

PATIENT
  Age: 75 Year
  Sex: Male

DRUGS (2)
  1. CLOZARIL [Suspect]
     Active Substance: CLOZAPINE
     Indication: Product used for unknown indication
     Dosage: UNK
     Route: 048
     Dates: start: 20191113, end: 20221017
  2. CLOZARIL [Suspect]
     Active Substance: CLOZAPINE
     Dosage: 37.5 MILLIGRAM, QD
     Route: 048
     Dates: start: 20191113, end: 20221014

REACTIONS (2)
  - Dementia [Unknown]
  - Malaise [Unknown]
